FAERS Safety Report 4686991-2 (Version None)
Quarter: 2005Q2

REPORT INFORMATION
  Report Type: 
  Country: None (occurrence: None)
  Receive Date: 20050606
  Receipt Date: 20050524
  Transmission Date: 20051028
  Serious: Yes (Life-Threatening, Other)
  Sender: FDA-Public Use
  Company Number: JP_050406314

PATIENT
  Age: 71 Year
  Sex: Female
  Weight: 62 kg

DRUGS (11)
  1. ONCOVIN [Suspect]
     Indication: ACUTE LYMPHOCYTIC LEUKAEMIA
     Dosage: 1.4 MG OTHER
     Route: 050
     Dates: start: 20050131, end: 20050218
  2. CYCLOPHOSPHAMIDE [Concomitant]
  3. DAUNORUBICIN HYDROCHLORIDE [Concomitant]
  4. LEUNASE (ASPARAGINASE LEUKAEMIA) [Concomitant]
  5. FAMOTIDINE [Concomitant]
  6. FIRSTCIN (CEFOZOPRAN HYDROCHLORIDE) [Concomitant]
  7. ISEPACIN (ISEPAMICIN SULFATE) [Concomitant]
  8. KYTRIL [Concomitant]
  9. MAXIPIME [Concomitant]
  10. AMIKACIN [Concomitant]
  11. SULPERAZON [Concomitant]

REACTIONS (5)
  - DISSEMINATED INTRAVASCULAR COAGULATION [None]
  - LIVER DISORDER [None]
  - NEUTROPENIA [None]
  - PLATELET COUNT DECREASED [None]
  - VENOOCCLUSIVE LIVER DISEASE [None]
